FAERS Safety Report 8447809-5 (Version None)
Quarter: 2012Q2

REPORT INFORMATION
  Report Type: 
  Country: None (occurrence: None)
  Receive Date: 20120619
  Receipt Date: 20120612
  Transmission Date: 20120825
  Serious: Yes (Other)
  Sender: FDA-Public Use
  Company Number: US-ABBOTT-12P-163-0932547-00

PATIENT
  Sex: Female
  Weight: 83.99 kg

DRUGS (20)
  1. VERAPAMIL EXTENDED-RELEASE [Concomitant]
     Indication: BLOOD PRESSURE ABNORMAL
  2. SYNTHROID [Concomitant]
     Indication: THYROID DISORDER
  3. HUMIRA [Suspect]
     Route: 058
     Dates: start: 20110701, end: 20111101
  4. XYZAL [Concomitant]
     Indication: HYPERSENSITIVITY
  5. PAMELOR [Concomitant]
     Indication: DEPRESSION
  6. HUMIRA [Suspect]
     Indication: ANKYLOSING SPONDYLITIS
     Route: 058
     Dates: start: 20070101, end: 20090201
  7. VICODIN ES [Concomitant]
     Indication: PRODUCT USED FOR UNKNOWN INDICATION
  8. VOLTARAN [Concomitant]
     Indication: PRODUCT USED FOR UNKNOWN INDICATION
  9. SYNTHROID [Concomitant]
     Indication: HYPOMETABOLISM
  10. LASIX [Concomitant]
     Indication: BLOOD PRESSURE ABNORMAL
  11. ACIPHEX [Concomitant]
     Indication: PROPHYLAXIS
  12. HUMIRA [Suspect]
     Route: 058
     Dates: start: 20090701, end: 20110201
  13. HUMIRA [Suspect]
     Route: 058
     Dates: start: 20120503
  14. PREDNISONE [Suspect]
     Indication: ANKYLOSING SPONDYLITIS
     Dosage: DAILY
     Route: 048
     Dates: end: 20120401
  15. PREDNISONE [Suspect]
     Route: 048
     Dates: start: 20120401
  16. FOVA [Concomitant]
     Indication: HEADACHE
  17. TOPRAL XL [Concomitant]
     Indication: PRODUCT USED FOR UNKNOWN INDICATION
  18. PROVERA [Concomitant]
     Indication: PRODUCT USED FOR UNKNOWN INDICATION
     Dosage: FOR ONLY HALF THE MONTH EACH MONTH
  19. WELLBUTRIN SR [Concomitant]
     Indication: PRODUCT USED FOR UNKNOWN INDICATION
  20. PREMARIN [Concomitant]
     Indication: PRODUCT USED FOR UNKNOWN INDICATION

REACTIONS (11)
  - CATARACT [None]
  - ANKYLOSING SPONDYLITIS [None]
  - MUSCLE SPASMS [None]
  - OSTEOARTHRITIS [None]
  - MIGRAINE [None]
  - GLAUCOMA [None]
  - PAIN [None]
  - SPINAL OSTEOARTHRITIS [None]
  - DRUG INEFFECTIVE [None]
  - MOBILITY DECREASED [None]
  - GENERAL PHYSICAL HEALTH DETERIORATION [None]
